FAERS Safety Report 9192525 (Version 1)
Quarter: 2013Q1

REPORT INFORMATION
  Report Type: Spontaneous
  Country: US (occurrence: None)
  Receive Date: 20130326
  Receipt Date: 20130326
  Transmission Date: 20140127
  Serious: No
  Sender: FDA-Public Use
  Company Number: None

PATIENT
  Age: 85 Year
  Sex: Male

DRUGS (1)
  1. ERIVEDGE 150MG GENENTECH [Suspect]
     Indication: HEAD AND NECK CANCER
     Route: 048
     Dates: start: 20121107, end: 20130301

REACTIONS (1)
  - Weight decreased [None]
